FAERS Safety Report 5972910-5 (Version None)
Quarter: 2008Q4

REPORT INFORMATION
  Report Type: 
  Country: None (occurrence: None)
  Receive Date: 20081201
  Receipt Date: 20081119
  Transmission Date: 20090506
  Serious: Yes (Other)
  Sender: FDA-Public Use
  Company Number: PHHY2008DE28912

PATIENT
  Sex: Male
  Weight: 87 kg

DRUGS (5)
  1. LEPONEX [Suspect]
     Indication: SCHIZOAFFECTIVE DISORDER
     Dosage: 12.5-300 MG/DAY
     Route: 048
     Dates: start: 20080806, end: 20080819
  2. LEPONEX [Suspect]
     Dosage: 300 MG/DAY
     Route: 048
     Dates: start: 20080818, end: 20080819
  3. GLIANIMON [Concomitant]
     Indication: SCHIZOAFFECTIVE DISORDER
     Dosage: 25 MG/DAY
     Route: 048
     Dates: start: 20080716
  4. TRUXAL [Concomitant]
     Dosage: 100 MG/DAY
     Route: 048
     Dates: start: 20080730, end: 20080909
  5. AKINETON [Concomitant]
     Dosage: 4-8 MG/DAY
     Route: 048
     Dates: start: 20080714, end: 20080930

REACTIONS (9)
  - ACUTE MYOCARDIAL INFARCTION [None]
  - C-REACTIVE PROTEIN INCREASED [None]
  - HEADACHE [None]
  - LEFT VENTRICULAR DYSFUNCTION [None]
  - MALAISE [None]
  - MYOCARDITIS [None]
  - NAUSEA [None]
  - PAIN [None]
  - TONSILLITIS STREPTOCOCCAL [None]
